FAERS Safety Report 21160384 (Version 1)
Quarter: 2022Q3

REPORT INFORMATION
  Report Type: Spontaneous
  Country: JP (occurrence: JP)
  Receive Date: 20220802
  Receipt Date: 20220802
  Transmission Date: 20221026
  Serious: Yes (Hospitalization, Other)
  Sender: FDA-Public Use
  Company Number: JP-MYLANLABS-2022M1082822

PATIENT
  Age: 93 Year
  Sex: Female

DRUGS (1)
  1. VERAPAMIL [Suspect]
     Active Substance: VERAPAMIL HYDROCHLORIDE
     Indication: Tachycardia
     Dosage: UNK (ROA: DR)
     Route: 065

REACTIONS (3)
  - Depressed level of consciousness [Recovering/Resolving]
  - Oxygen saturation decreased [Recovering/Resolving]
  - Cardiogenic shock [Recovering/Resolving]
